APPROVED DRUG PRODUCT: MITIGO
Active Ingredient: MORPHINE SULFATE
Strength: 25MG/ML
Dosage Form/Route: INJECTABLE;INJECTION
Application: A204393 | Product #002 | TE Code: AP
Applicant: PIRAMAL CRITICAL CARE INC
Approved: Jul 16, 2018 | RLD: No | RS: No | Type: RX